FAERS Safety Report 9178551 (Version 1)
Quarter: 2012Q4

REPORT INFORMATION
  Report Type: 
  Country: US (occurrence: US)
  Receive Date: 20121029
  Receipt Date: 20121029
  Transmission Date: 20130627
  Serious: No
  Sender: FDA-Public Use
  Company Number: US-AMGEN-USASP2012054094

PATIENT
  Sex: Female
  Weight: 104.31 kg

DRUGS (6)
  1. ENBREL [Suspect]
     Indication: PRODUCT USED FOR UNKNOWN INDICATION
     Dosage: 50 mg, qwk
     Route: 058
  2. FOSAMAX [Concomitant]
     Dosage: 10 mg, UNK
  3. AMLODIPINE [Concomitant]
     Dosage: 2.5 mg, UNK
  4. LOSARTAN/HCT [Concomitant]
     Dosage: 100-12.5
  5. OMEGA 3                            /01334101/ [Concomitant]
     Dosage: 1200 mg, UNK
  6. CALCIUM D                          /00944201/ [Concomitant]
     Dosage: UNK

REACTIONS (1)
  - Pruritus [Unknown]
